FAERS Safety Report 7817836-7 (Version None)
Quarter: 2011Q4

REPORT INFORMATION
  Report Type: 
  Country: None (occurrence: None)
  Receive Date: 20111017
  Receipt Date: 20111006
  Transmission Date: 20120403
  Serious: Yes (Life-Threatening)
  Sender: FDA-Public Use
  Company Number: JP-SANOFI-AVENTIS-2011SA065213

PATIENT
  Age: 69 Year
  Sex: Female
  Weight: 61 kg

DRUGS (6)
  1. ZOLPIDEM [Suspect]
     Route: 048
  2. ALL OTHER THERAPEUTIC PRODUCTS [Concomitant]
  3. LANTUS [Concomitant]
     Indication: DIABETES MELLITUS
     Route: 058
     Dates: end: 20110825
  4. ZOLPIDEM [Suspect]
     Route: 048
     Dates: start: 20110826, end: 20110826
  5. LANTUS [Concomitant]
     Route: 058
     Dates: start: 20110826, end: 20110826
  6. TOUKAKUJOUKITOU [Concomitant]

REACTIONS (2)
  - MULTIPLE DRUG OVERDOSE INTENTIONAL [None]
  - HYPOGLYCAEMIA [None]
